FAERS Safety Report 5851981-0 (Version None)
Quarter: 2008Q3

REPORT INFORMATION
  Report Type: 
  Country: None (occurrence: None)
  Receive Date: 20080820
  Receipt Date: 20080809
  Transmission Date: 20090109
  Serious: Yes (Other)
  Sender: FDA-Public Use
  Company Number: US-PFIZER INC-2008061644

PATIENT
  Sex: Female
  Weight: 68.5 kg

DRUGS (11)
  1. CHANTIX [Suspect]
     Indication: SMOKING CESSATION THERAPY
     Route: 048
  2. XANAX [Concomitant]
     Route: 048
  3. CELEXA [Concomitant]
     Route: 048
  4. OXYCONTIN [Concomitant]
     Route: 048
  5. OXYCODONE HCL [Concomitant]
     Route: 048
  6. RESTORIL [Concomitant]
     Route: 048
  7. PROMETHAZINE [Concomitant]
     Route: 048
  8. NORFLEX [Concomitant]
     Route: 048
  9. BENZATROPINE [Concomitant]
     Route: 048
  10. ANALGESICS [Concomitant]
     Route: 048
  11. IMITREX [Concomitant]

REACTIONS (4)
  - BIPOLAR I DISORDER [None]
  - MOOD SWINGS [None]
  - SELF INJURIOUS BEHAVIOUR [None]
  - VOMITING [None]
